FAERS Safety Report 5467589-5 (Version None)
Quarter: 2007Q3

REPORT INFORMATION
  Report Type: 
  Country: None (occurrence: None)
  Receive Date: 20070921
  Receipt Date: 20070906
  Transmission Date: 20080115
  Serious: Yes (Life-Threatening, Hospitalization, Other)
  Sender: FDA-Public Use
  Company Number: 2007S1007512

PATIENT
  Age: 45 Year
  Sex: Male

DRUGS (5)
  1. FENTANYL TRANSDERMAL SYSTEM (125 UG/HR) [Suspect]
     Indication: BACK PAIN
     Dosage: 25 UG/HR; EVERY OTHER DAY; TRANSDERMAL
     Route: 062
     Dates: start: 20070701, end: 20070802
  2. KLONOPIN (CON.) [Concomitant]
  3. POTASSIUM (CON.) [Concomitant]
  4. AMITRIPTYLINE (CON.) [Concomitant]
  5. CYMBALTA (CON.) [Concomitant]

REACTIONS (4)
  - DRUG ADMINISTERED AT INAPPROPRIATE SITE [None]
  - LOSS OF CONSCIOUSNESS [None]
  - PHARMACEUTICAL PRODUCT COMPLAINT [None]
  - RESPIRATORY ARREST [None]
